FAERS Safety Report 7747058-X (Version None)
Quarter: 2011Q3

REPORT INFORMATION
  Report Type: 
  Country: None (occurrence: None)
  Receive Date: 20110913
  Receipt Date: 20110908
  Transmission Date: 20111222
  Serious: Yes (Life-Threatening, Hospitalization)
  Sender: FDA-Public Use
  Company Number: PHHY2011FR80094

PATIENT
  Sex: Male

DRUGS (6)
  1. LOXAPINE HCL [Concomitant]
     Indication: DELIRIUM
     Dosage: UNK UKN, UNK
     Route: 030
  2. TERCIAN [Suspect]
     Dosage: 100 MG, QD
     Route: 048
     Dates: start: 20090101, end: 20110821
  3. ZYPREXA [Suspect]
     Dosage: 15 MG, QD
     Dates: start: 20110718, end: 20110819
  4. TRILEPTAL [Suspect]
     Dosage: 300 MG, BID
     Dates: start: 20080101, end: 20110821
  5. OXAZEPAM [Concomitant]
     Dosage: UNK UKN, UNK
     Dates: start: 20080101
  6. ZYPREXA [Suspect]
     Dosage: 5 MG, QD
     Dates: start: 20110501

REACTIONS (16)
  - ASTHENIA [None]
  - HYPOKALAEMIA [None]
  - HYPERTHERMIA [None]
  - HYPERTENSION [None]
  - CONDITION AGGRAVATED [None]
  - VENTRICULAR HYPOKINESIA [None]
  - PNEUMONIA ASPIRATION [None]
  - FALL [None]
  - CARDIO-RESPIRATORY ARREST [None]
  - EJECTION FRACTION DECREASED [None]
  - PULMONARY SEPSIS [None]
  - BLOOD CREATININE INCREASED [None]
  - HAEMATOMA [None]
  - HYPONATRAEMIA [None]
  - AGITATION [None]
  - OPEN WOUND [None]
